FAERS Safety Report 5363635-8 (Version None)
Quarter: 2007Q2

REPORT INFORMATION
  Report Type: 
  Country: None (occurrence: None)
  Receive Date: 20070618
  Receipt Date: 20070618
  Transmission Date: 20071010
  Serious: Yes (Hospitalization)
  Sender: FDA-Public Use
  Company Number: None

PATIENT
  Sex: Female
  Weight: 99 kg

DRUGS (2)
  1. CARBOPLATIN [Suspect]
     Dosage: 690 MG
  2. TAXOL [Suspect]
     Dosage: 2 MG

REACTIONS (3)
  - FEBRILE NEUTROPENIA [None]
  - HEADACHE [None]
  - HYPERSENSITIVITY [None]
